FAERS Safety Report 9536968 (Version 1)
Quarter: 2013Q4

REPORT INFORMATION
  Report Type: Spontaneous
  Country: US (occurrence: None)
  Receive Date: 20130918
  Receipt Date: 20130918
  Transmission Date: 20140711
  Serious: Yes (Other)
  Sender: FDA-Public Use
  Company Number: None

PATIENT
  Age: 52 Year
  Sex: Male
  Weight: 97.52 kg

DRUGS (1)
  1. HIBICLENS [Suspect]
     Indication: WOUND TREATMENT
     Dosage: TOPICAL
     Route: 061
     Dates: start: 20130711

REACTIONS (3)
  - Wound complication [None]
  - Swelling [None]
  - No reaction on previous exposure to drug [None]
